FAERS Safety Report 16129653 (Version 2)
Quarter: 2019Q2

REPORT INFORMATION
  Report Type: Report from Study
  Country: US (occurrence: US)
  Receive Date: 20190328
  Receipt Date: 20190416
  Transmission Date: 20190711
  Serious: Yes (Hospitalization)
  Sender: FDA-Public Use
  Company Number: US-BAXTER-2019BAX005866

PATIENT
  Age: 5 Year
  Sex: Male
  Weight: 19.9 kg

DRUGS (9)
  1. BACTRIM [Concomitant]
     Active Substance: SULFAMETHOXAZOLE\TRIMETHOPRIM
     Indication: PROPHYLAXIS
     Route: 065
  2. CYCLOPHOSPHAMIDE FOR INJECTION, USP [Suspect]
     Active Substance: CYCLOPHOSPHAMIDE
     Indication: EMBRYONAL RHABDOMYOSARCOMA
     Dosage: OVER 60MIN. ON DAY 1 OF CYCLES 1,3,5,8,10,12 AND 14
     Route: 042
  3. VINCRISTINE SULFATE. [Suspect]
     Active Substance: VINCRISTINE SULFATE
     Indication: EMBRYONAL RHABDOMYOSARCOMA
     Dosage: OVER 1MIN OR INFUSION OVER MINI BAG. ON DAYS 1,8 AND 15 OF CYCLES 1 TO 4, CYCLE 8 AND 11, ON DAY 1 O
     Route: 042
     Dates: start: 20190116
  4. DACTINOMYCIN [Suspect]
     Active Substance: DACTINOMYCIN
     Indication: EMBRYONAL RHABDOMYOSARCOMA
     Dosage: OVER 1 TO 5 MINUTES ON DAY 1 OF CYCLE 1,3,5,8,10,12,14
     Route: 042
     Dates: start: 20190211
  5. CAMPTOSAR [Suspect]
     Active Substance: IRINOTECAN HYDROCHLORIDE
     Dosage: LAST DOSE PRIOR TO SAE
     Route: 042
     Dates: start: 20190120
  6. TEMSIROLIMUS. [Suspect]
     Active Substance: TEMSIROLIMUS
     Indication: EMBRYONAL RHABDOMYOSARCOMA
     Dosage: OVER 30 TO 60 MIN ON DAYS 1 AND 8 OF CYCLES 1 TO 4, 8 TO 12 AND DAY OF 1 OF CYCLE 13
     Route: 042
     Dates: start: 20160116
  7. TEMSIROLIMUS. [Suspect]
     Active Substance: TEMSIROLIMUS
     Dosage: MOST RECENT DOSE PRIOR TO THE EVENT
     Route: 042
     Dates: start: 20190226
  8. VINCRISTINE SULFATE. [Suspect]
     Active Substance: VINCRISTINE SULFATE
     Dosage: LAST DOSE PRIOR TO SAE
     Route: 042
     Dates: start: 20190211
  9. CAMPTOSAR [Suspect]
     Active Substance: IRINOTECAN HYDROCHLORIDE
     Indication: EMBRYONAL RHABDOMYOSARCOMA
     Dosage: OVER 90 MIN ON DAYS 1 TO 5 OF CYCLES 2,3,5,6,7,9,10,11 AND 13
     Route: 042
     Dates: start: 20190116

REACTIONS (3)
  - Penile pain [Recovering/Resolving]
  - Haematuria [Recovering/Resolving]
  - Cystitis noninfective [Recovering/Resolving]

NARRATIVE: CASE EVENT DATE: 20190227
